FAERS Safety Report 9565083 (Version 1)
Quarter: 2013Q3

REPORT INFORMATION
  Report Type: Spontaneous
  Country: CH (occurrence: CH)
  Receive Date: 20130930
  Receipt Date: 20130930
  Transmission Date: 20140515
  Serious: Yes (Hospitalization)
  Sender: FDA-Public Use
  Company Number: CH-PFIZER INC-2013275192

PATIENT
  Age: 68 Year
  Sex: Female

DRUGS (7)
  1. ALDACTONE [Suspect]
     Indication: ESSENTIAL HYPERTENSION
     Dosage: 200 MG, 2X/DAY
     Route: 048
  2. ALDACTONE [Interacting]
     Dosage: 200 MG, 1X/DAY
     Route: 048
     Dates: end: 20130826
  3. COVERSUM COMBI [Interacting]
     Indication: ESSENTIAL HYPERTENSION
     Dosage: 2.5 MG/0.625 MG, 1X/DAY
     Route: 048
     Dates: end: 20130826
  4. ESOMEP MUPS [Concomitant]
     Dosage: 40 MG, 1X/DAY
  5. MAGNESIOCARD [Concomitant]
     Dosage: 10 MMOL, 1X/DAY
  6. DUPHALAC [Concomitant]
     Dosage: 20 ML, 1X/DAY
  7. NOROXIN [Concomitant]
     Dosage: 400 MG, 1X/DAY
     Dates: end: 201308

REACTIONS (3)
  - Medication error [Recovered/Resolved]
  - Drug interaction [Unknown]
  - Hyponatraemia [Recovered/Resolved]
